FAERS Safety Report 14230242 (Version 1)
Quarter: 2017Q4

REPORT INFORMATION
  Report Type: Spontaneous
  Country: ZA (occurrence: ZA)
  Receive Date: 20171128
  Receipt Date: 20171128
  Transmission Date: 20180321
  Serious: Yes (Other)
  Sender: FDA-Public Use
  Company Number: ZA-SA-2017SA233499

PATIENT
  Sex: Female
  Weight: 65 kg

DRUGS (4)
  1. SALAZOPYRIN [Suspect]
     Active Substance: SULFASALAZINE
     Dosage: 1 G BID
     Route: 065
     Dates: start: 201502, end: 201609
  2. CHLOROQUINE. [Suspect]
     Active Substance: CHLOROQUINE
     Route: 048
     Dates: start: 201406, end: 201408
  3. ARAVA [Suspect]
     Active Substance: LEFLUNOMIDE
     Route: 048
     Dates: start: 201609
  4. METHOTREXATE. [Suspect]
     Active Substance: METHOTREXATE
     Route: 065
     Dates: start: 201406

REACTIONS (9)
  - Dyslipidaemia [Unknown]
  - Depression [Unknown]
  - Drug resistance [Unknown]
  - Hypertension [Unknown]
  - Spinal osteoarthritis [Unknown]
  - Rheumatoid arthritis [Unknown]
  - Adverse event [Unknown]
  - Rhinitis allergic [Unknown]
  - Osteoporosis [Unknown]

NARRATIVE: CASE EVENT DATE: 2014
